FAERS Safety Report 23992228 (Version 3)
Quarter: 2024Q3

REPORT INFORMATION
  Report Type: Report from Study
  Country: ES (occurrence: ES)
  Receive Date: 20240620
  Receipt Date: 20240708
  Transmission Date: 20241017
  Serious: Yes (Hospitalization)
  Sender: ABBVIE
  Company Number: ES-ABBVIE-5805213

PATIENT
  Sex: Female

DRUGS (4)
  1. CARBIDOPA\LEVODOPA [Suspect]
     Active Substance: CARBIDOPA\LEVODOPA
     Indication: Parkinson^s disease
     Route: 050
     Dates: start: 20161202
  2. CARBIDOPA\LEVODOPA [Suspect]
     Active Substance: CARBIDOPA\LEVODOPA
  3. MUPIROCIN [Concomitant]
     Active Substance: MUPIROCIN
     Indication: Product used for unknown indication
     Route: 061
     Dates: start: 20240606, end: 20240617
  4. Positon [Concomitant]
     Indication: Product used for unknown indication
     Route: 061
     Dates: start: 20240617

REACTIONS (6)
  - Infected skin ulcer [Not Recovered/Not Resolved]
  - Device issue [Unknown]
  - Stoma site infection [Not Recovered/Not Resolved]
  - Purulent discharge [Unknown]
  - Perforated ulcer [Not Recovered/Not Resolved]
  - Decubitus ulcer [Not Recovered/Not Resolved]

NARRATIVE: CASE EVENT DATE: 20240101
